FAERS Safety Report 7422152-1 (Version None)
Quarter: 2011Q2

REPORT INFORMATION
  Report Type: 
  Country: None (occurrence: None)
  Receive Date: 20110418
  Receipt Date: 20110216
  Transmission Date: 20111010
  Serious: Yes (Hospitalization, Other)
  Sender: FDA-Public Use
  Company Number: US-BAYER-201031625NA

PATIENT
  Age: 40 Year
  Sex: Female
  Weight: 117.91 kg

DRUGS (7)
  1. YAZ [Suspect]
     Indication: ACNE
     Route: 048
     Dates: start: 20060901, end: 20080802
  2. FEXOFENADINE [Concomitant]
     Dosage: UNK
     Dates: start: 20080101
  3. FOSINOPRIL SODIUM [Concomitant]
     Dosage: UNK
     Dates: start: 20080101
  4. YASMIN [Suspect]
     Indication: PRODUCT USED FOR UNKNOWN INDICATION
     Route: 048
     Dates: start: 20060901, end: 20080802
  5. MONOPRIL [Concomitant]
     Dosage: UNK
     Dates: start: 20070101, end: 20080801
  6. NSAIDS [Concomitant]
  7. MONOPRIL [Concomitant]

REACTIONS (3)
  - VASCULAR PSEUDOANEURYSM [None]
  - TRANSIENT ISCHAEMIC ATTACK [None]
  - PAIN [None]
